FAERS Safety Report 20377061 (Version 1)
Quarter: 2022Q1

REPORT INFORMATION
  Report Type: Spontaneous
  Country: FR (occurrence: FR)
  Receive Date: 20220125
  Receipt Date: 20220125
  Transmission Date: 20220423
  Serious: Yes (Hospitalization, Other)
  Sender: FDA-Public Use
  Company Number: None

PATIENT
  Age: 69 Year
  Sex: Female
  Weight: 56 kg

DRUGS (15)
  1. CLARITHROMYCIN [Suspect]
     Active Substance: CLARITHROMYCIN
     Indication: Mycobacterial infection
     Dosage: 1000 MG, QD
     Route: 048
     Dates: start: 20211029, end: 20211119
  2. RIFAMPIN [Suspect]
     Active Substance: RIFAMPIN
     Indication: Mycobacterial infection
     Dosage: 600 MG, QD
     Route: 048
     Dates: start: 20211029, end: 20211119
  3. FLUINDIONE [Suspect]
     Active Substance: FLUINDIONE
     Indication: Pulmonary embolism
     Dosage: 15 MG, QD
     Route: 048
     Dates: start: 20211029, end: 20211119
  4. PANTOPRAZOLE [Concomitant]
     Active Substance: PANTOPRAZOLE
  5. AMOXICILLIN [Concomitant]
     Active Substance: AMOXICILLIN
  6. PAROXETINE MESYLATE [Concomitant]
     Active Substance: PAROXETINE MESYLATE
  7. VALACYCLOVIR HYDROCHLORIDE [Concomitant]
     Active Substance: VALACYCLOVIR HYDROCHLORIDE
  8. SMECTA [Concomitant]
     Active Substance: MONTMORILLONITE
  9. MORPHINE SULFATE [Concomitant]
     Active Substance: MORPHINE SULFATE
  10. BACTRIM [Concomitant]
     Active Substance: SULFAMETHOXAZOLE\TRIMETHOPRIM
  11. CHOLECALCIFEROL [Concomitant]
     Active Substance: CHOLECALCIFEROL
  12. CALCIUM ACETATE [Concomitant]
     Active Substance: CALCIUM ACETATE
  13. PREDNISONE [Concomitant]
     Active Substance: PREDNISONE
  14. VEDOLIZUMAB [Concomitant]
     Active Substance: VEDOLIZUMAB
  15. SKENAN [Concomitant]
     Active Substance: MORPHINE SULFATE

REACTIONS (1)
  - Dermatitis exfoliative generalised [Recovered/Resolved]
